FAERS Safety Report 8993569 (Version 1)
Quarter: 2013Q1

REPORT INFORMATION
  Report Type: Report from Study
  Country: PE (occurrence: PE)
  Receive Date: 20130102
  Receipt Date: 20130102
  Transmission Date: 20140127
  Serious: Yes (Hospitalization)
  Sender: FDA-Public Use
  Company Number: PE-BRISTOL-MYERS SQUIBB COMPANY-14748685

PATIENT
  Age: 70 Year
  Sex: Male

DRUGS (4)
  1. DASATINIB [Suspect]
     Indication: PROSTATE CANCER
     Dosage: INTERRUPTED IN JUL09
     Route: 048
     Dates: start: 20090602
  2. DOCETAXEL [Suspect]
     Indication: PROSTATE CANCER
     Dosage: INTERRUPTED ON 23JUL09
     Route: 042
     Dates: start: 20090602
  3. PREDNISONE [Suspect]
     Indication: PROSTATE CANCER
     Dosage: STOP DATE JUL09
     Route: 048
     Dates: start: 20090602
  4. DEXAMETHASONE [Suspect]
     Indication: PREMEDICATION

REACTIONS (4)
  - Dehydration [Recovered/Resolved]
  - Pleural effusion [Recovered/Resolved]
  - Pneumothorax [Recovered/Resolved]
  - Pneumonia [Recovered/Resolved]
